FAERS Safety Report 4959672-5 (Version None)
Quarter: 2006Q1

REPORT INFORMATION
  Report Type: 
  Country: None (occurrence: None)
  Receive Date: 20060331
  Receipt Date: 20051213
  Transmission Date: 20060701
  Serious: Yes (Life-Threatening, Hospitalization)
  Sender: FDA-Public Use
  Company Number: PHBS2005JP18409

PATIENT
  Age: 11 Year
  Sex: Male
  Weight: 32 kg

DRUGS (6)
  1. VOLTAREN [Suspect]
     Indication: ANTIPYRESIS
     Dosage: 50 MG/DAY
     Route: 054
     Dates: start: 20051207, end: 20051209
  2. PREDONINE [Concomitant]
     Indication: ANTIPYRESIS
     Dosage: 10 MG/DAY
     Route: 042
     Dates: start: 20051207, end: 20051209
  3. BUFFERIN [Concomitant]
     Indication: ANTIPYRESIS
     Route: 048
     Dates: start: 20051205, end: 20051205
  4. SULPYRINE [Concomitant]
     Indication: ANTIPYRESIS
     Dosage: 0.3 ML/DAY
     Route: 042
     Dates: start: 20051207, end: 20051209
  5. KASHILON [Concomitant]
     Indication: ANTIBIOTIC PROPHYLAXIS
     Route: 042
     Dates: start: 20051207, end: 20051209
  6. CEFAZOLIN SODIUM [Concomitant]
     Indication: ANTIBIOTIC PROPHYLAXIS
     Dosage: 1 G/DAY
     Route: 042
     Dates: start: 20051207, end: 20051209

REACTIONS (29)
  - ACUTE RESPIRATORY DISTRESS SYNDROME [None]
  - ALANINE AMINOTRANSFERASE INCREASED [None]
  - ASPARTATE AMINOTRANSFERASE INCREASED [None]
  - BLOOD ALBUMIN DECREASED [None]
  - BLOOD CREATININE INCREASED [None]
  - BLOOD FIBRINOGEN DECREASED [None]
  - BLOOD LACTATE DEHYDROGENASE INCREASED [None]
  - BLOOD PH INCREASED [None]
  - BLOOD UREA INCREASED [None]
  - C-REACTIVE PROTEIN INCREASED [None]
  - COUGH [None]
  - DISSEMINATED INTRAVASCULAR COAGULATION [None]
  - DYSPNOEA [None]
  - HAEMATOCRIT DECREASED [None]
  - HAEMOGLOBIN DECREASED [None]
  - INTERSTITIAL LUNG DISEASE [None]
  - LUNG INFILTRATION [None]
  - LYMPHOCYTE STIMULATION TEST POSITIVE [None]
  - PANCYTOPENIA [None]
  - PETECHIAE [None]
  - PHARYNGITIS [None]
  - PLATELET COUNT DECREASED [None]
  - PO2 INCREASED [None]
  - PROTEIN TOTAL DECREASED [None]
  - RASH [None]
  - RENAL FAILURE ACUTE [None]
  - UPPER RESPIRATORY TRACT INFLAMMATION [None]
  - WHITE BLOOD CELL COUNT DECREASED [None]
  - WHITE BLOOD CELL COUNT INCREASED [None]
